FAERS Safety Report 5012601-0 (Version None)
Quarter: 2006Q2

REPORT INFORMATION
  Report Type: 
  Country: None (occurrence: None)
  Receive Date: 20060410
  Receipt Date: 20050701
  Transmission Date: 20061013
  Serious: Yes (Hospitalization)
  Sender: FDA-Public Use
  Company Number: MED-05040

PATIENT
  Age: 45 Year
  Sex: Female
  Weight: 54.4316 kg

DRUGS (1)
  1. PREDNISONE [Suspect]
     Indication: SEASONAL ALLERGY
     Dosage: 10 MG TID ORAL
     Route: 048
     Dates: start: 20030920, end: 20030926

REACTIONS (4)
  - ARTHRALGIA [None]
  - MUSCLE SPASMS [None]
  - MUSCULAR WEAKNESS [None]
  - NECROSIS [None]
